FAERS Safety Report 8471554-3 (Version None)
Quarter: 2012Q2

REPORT INFORMATION
  Report Type: 
  Country: None (occurrence: None)
  Receive Date: 20120627
  Receipt Date: 20120618
  Transmission Date: 20120825
  Serious: Yes (Hospitalization)
  Sender: FDA-Public Use
  Company Number: FR-VERTEX PHARMACEUTICALS INC.-000000000000000971

PATIENT
  Age: 6 Decade
  Sex: Male

DRUGS (3)
  1. INCIVO [Suspect]
     Indication: HEPATITIS C
     Dosage: DOSAGE FORM: TABLET, TELAPREVIR WITHDRAWAL AFTER 10 WEEKS OF TREATMENT
     Dates: start: 20120301
  2. PEGINTERFERON ALFA-2B [Concomitant]
     Indication: HEPATITIS C
  3. RIBAVIRIN [Concomitant]
     Indication: HEPATITIS C

REACTIONS (4)
  - ANAEMIA [None]
  - SEPSIS [None]
  - VASCULITIS [None]
  - TOXIC SKIN ERUPTION [None]
